FAERS Safety Report 13582606 (Version 1)
Quarter: 2017Q2

REPORT INFORMATION
  Report Type: Spontaneous
  Country: US (occurrence: US)
  Receive Date: 20170525
  Receipt Date: 20170525
  Transmission Date: 20170830
  Serious: Yes (Other)
  Sender: FDA-Public Use
  Company Number: US-CELGENEUS-USA-20170505815

PATIENT
  Age: 3 Year
  Sex: Female

DRUGS (8)
  1. METHOTREXATE. [Concomitant]
     Active Substance: METHOTREXATE
     Indication: SKIN LESION
  2. VINBLASTINE [Concomitant]
     Active Substance: VINBLASTINE
     Indication: SKIN LESION
  3. THALOMID [Suspect]
     Active Substance: THALIDOMIDE
     Indication: GORHAM^S DISEASE
  4. THALOMID [Suspect]
     Active Substance: THALIDOMIDE
     Indication: LYMPHATIC DISORDER
     Route: 048
  5. DOXYCYCLINE. [Concomitant]
     Active Substance: DOXYCYCLINE
     Indication: PRODUCT USED FOR UNKNOWN INDICATION
     Route: 065
  6. METHOTREXATE. [Concomitant]
     Active Substance: METHOTREXATE
     Indication: PLEURAL EFFUSION
     Dosage: 30 MILLIGRAM/SQ. METER
     Route: 041
  7. FOSAMAX [Concomitant]
     Active Substance: ALENDRONATE SODIUM
     Indication: PRODUCT USED FOR UNKNOWN INDICATION
     Route: 065
  8. VINBLASTINE [Concomitant]
     Active Substance: VINBLASTINE
     Indication: PLEURAL EFFUSION
     Dosage: 5 MILLIGRAM/SQ. METER
     Route: 041

REACTIONS (3)
  - Pleural effusion [Not Recovered/Not Resolved]
  - Skin lesion [Not Recovered/Not Resolved]
  - Headache [Unknown]
